FAERS Safety Report 15235717 (Version 1)
Quarter: 2018Q3

REPORT INFORMATION
  Report Type: Spontaneous
  Country: FR (occurrence: FR)
  Receive Date: 20180803
  Receipt Date: 20180803
  Transmission Date: 20181010
  Serious: Yes (Hospitalization, Disabling, Other)
  Sender: FDA-Public Use
  Company Number: FR-CONCORDIA PHARMACEUTICALS INC.-E2B_00015483

PATIENT
  Age: 33 Year
  Sex: Female
  Weight: 40 kg

DRUGS (20)
  1. OFLOCET [OFLOXACIN] [Concomitant]
     Dosage: 1 DF,QD
     Route: 001
  2. OGASTORO [Concomitant]
     Active Substance: LANSOPRAZOLE
     Dosage: UNK UNK,QD
     Route: 065
  3. ZELITREX [Concomitant]
     Active Substance: VALACYCLOVIR HYDROCHLORIDE
     Dosage: 1 DF,QD
  4. GENTALLINE [Concomitant]
     Active Substance: GENTAMICIN SULFATE
     Dosage: 1 DF,UNK
  5. DOLIPRANE [Concomitant]
     Active Substance: ACETAMINOPHEN
     Indication: PAIN
     Dosage: 1 DF,TID
     Route: 048
  6. TIORFAN [Concomitant]
     Active Substance: RACECADOTRIL
     Indication: DIARRHOEA
     Dosage: 1 DF,TID
  7. PREDNISOLONE. [Concomitant]
     Active Substance: PREDNISOLONE
     Dosage: UNK
  8. DAFALGAN CODEINE [Concomitant]
     Active Substance: ACETAMINOPHEN\CODEINE PHOSPHATE
     Dosage: 3 DF,QD
     Route: 065
  9. ACETYLSALICYLATE LYSINE [Concomitant]
     Active Substance: ASPIRIN DL-LYSINE
     Dosage: 3 DF,QD
  10. PREDNISOLONE. [Suspect]
     Active Substance: PREDNISOLONE
     Dosage: 20 MG,QD
     Route: 048
     Dates: start: 201106, end: 201106
  11. TAVANIC [Suspect]
     Active Substance: LEVOFLOXACIN
     Indication: SINUSITIS
     Dosage: 1 DF,QD
     Route: 065
     Dates: start: 20100520
  12. CELESTENE [BETAMETHASONE] [Concomitant]
     Dosage: 1 DF,QD
  13. ESSENTIAL OILS NOS [Concomitant]
     Dosage: 1 DF,BID
  14. TAVANIC [Suspect]
     Active Substance: LEVOFLOXACIN
     Indication: NASOPHARYNGITIS
     Dosage: 1 DF, QD
     Dates: start: 20110616, end: 20110617
  15. ACETYLCYSTEINE. [Concomitant]
     Active Substance: ACETYLCYSTEINE
     Dosage: 1 DF,UNK
  16. GYNO?PEVARYL [Concomitant]
     Active Substance: ECONAZOLE NITRATE
     Dosage: 1 DF,Q3D
  17. ULTRA?LEVURE [Concomitant]
     Active Substance: SACCHAROMYCES CEREVISIAE
     Dosage: 1 DF,BID
  18. LUTERAN [Concomitant]
     Active Substance: CHLORMADINONE ACETATE
     Dosage: UNK
     Dates: start: 2008
  19. XYZALL [Concomitant]
     Active Substance: LEVOCETIRIZINE DIHYDROCHLORIDE
     Dosage: UNK
  20. ACETYLSALICYLATE LYSINE [Concomitant]
     Active Substance: ASPIRIN DL-LYSINE
     Dosage: UNK UNK,BID
     Route: 065

REACTIONS (25)
  - Asthenia [Not Recovered/Not Resolved]
  - Pericarditis [Unknown]
  - Tenosynovitis [Not Recovered/Not Resolved]
  - Muscle atrophy [Not Recovered/Not Resolved]
  - Arthralgia [Not Recovered/Not Resolved]
  - Periarthritis [Unknown]
  - Tendon pain [Not Recovered/Not Resolved]
  - Sciatica [Not Recovered/Not Resolved]
  - Paraesthesia [Not Recovered/Not Resolved]
  - Condition aggravated [Not Recovered/Not Resolved]
  - Neuropathy peripheral [Not Recovered/Not Resolved]
  - Complex regional pain syndrome [Unknown]
  - Musculoskeletal injury [Unknown]
  - Neuralgia [Not Recovered/Not Resolved]
  - Intervertebral disc protrusion [Not Recovered/Not Resolved]
  - Rotator cuff syndrome [Not Recovered/Not Resolved]
  - Myoclonus [Not Recovered/Not Resolved]
  - Arthralgia [Not Recovered/Not Resolved]
  - Pain [Not Recovered/Not Resolved]
  - Pain in extremity [Not Recovered/Not Resolved]
  - Tendonitis [Not Recovered/Not Resolved]
  - Tendonitis [Not Recovered/Not Resolved]
  - Rash [Unknown]
  - Neck pain [Not Recovered/Not Resolved]
  - Arthralgia [Unknown]

NARRATIVE: CASE EVENT DATE: 201106
